FAERS Safety Report 21308035 (Version 3)
Quarter: 2022Q4

REPORT INFORMATION
  Report Type: Spontaneous
  Country: DE (occurrence: DE)
  Receive Date: 20220908
  Receipt Date: 20221010
  Transmission Date: 20230113
  Serious: No
  Sender: FDA-Public Use
  Company Number: DE-NOVARTISPH-NVSC2022DE201499

PATIENT
  Age: 74 Year
  Sex: Female

DRUGS (3)
  1. MYCOPHENOLATE MOFETIL [Suspect]
     Active Substance: MYCOPHENOLATE MOFETIL
     Indication: Systemic scleroderma
     Dosage: UNK
     Route: 065
     Dates: end: 2017
  2. SILDENAFIL [Concomitant]
     Active Substance: SILDENAFIL
     Indication: Systemic scleroderma
     Dosage: 20 MG, TID
     Route: 065
  3. ALPROSTADIL [Concomitant]
     Active Substance: ALPROSTADIL
     Indication: Systemic scleroderma
     Dosage: UNK
     Route: 065

REACTIONS (1)
  - Drug ineffective for unapproved indication [Unknown]
